FAERS Safety Report 17895673 (Version 2)
Quarter: 2021Q3

REPORT INFORMATION
  Report Type: Spontaneous
  Country: US (occurrence: US)
  Receive Date: 20200615
  Receipt Date: 20210902
  Transmission Date: 20211014
  Serious: Yes (Death, Other)
  Sender: FDA-Public Use
  Company Number: US-SA-2020SA152313

PATIENT
  Age: 48 Year
  Sex: Female

DRUGS (1)
  1. ZANTAC [Suspect]
     Active Substance: RANITIDINE HYDROCHLORIDE
     Indication: DYSPEPSIA
     Dosage: 150 MG, QD
     Dates: start: 199801, end: 201801

REACTIONS (2)
  - Hepatic cancer stage IV [Fatal]
  - Colorectal cancer stage IV [Fatal]

NARRATIVE: CASE EVENT DATE: 20150101
